FAERS Safety Report 4425028-7 (Version None)
Quarter: 2004Q3

REPORT INFORMATION
  Report Type: 
  Country: None (occurrence: None)
  Receive Date: 20040813
  Receipt Date: 20040629
  Transmission Date: 20050211
  Serious: Yes (Hospitalization)
  Sender: FDA-Public Use
  Company Number: 200412227JP

PATIENT
  Age: 47 Year
  Sex: Female

DRUGS (12)
  1. LASIX [Suspect]
     Indication: OEDEMA
     Route: 048
     Dates: start: 19990101, end: 20040610
  2. ALFAROL [Suspect]
     Indication: OSTEOPOROSIS
     Route: 048
     Dates: end: 20040610
  3. ISCOTIN [Suspect]
     Indication: TUBERCULOSIS PROPHYLAXIS
     Route: 048
     Dates: start: 20031114, end: 20040616
  4. PARIET [Suspect]
     Indication: GASTRIC ULCER
     Route: 048
     Dates: start: 20031208, end: 20040610
  5. DIAMOX [Suspect]
     Indication: GLAUCOMA
     Route: 048
     Dates: start: 20031115, end: 20040610
  6. GLUCONSAN K [Suspect]
     Indication: GLAUCOMA
     Route: 048
     Dates: start: 20031115, end: 20040610
  7. VITAMEDIN CAPSULE [Suspect]
     Indication: HYPOVITAMINOSIS
     Dosage: DOSE: 3CAPS/DAY
     Route: 048
     Dates: start: 20031119, end: 20040610
  8. RHEUMATREX [Suspect]
     Indication: RHEUMATOID ARTHRITIS
     Dosage: DOSE: 6MG/WEEK
     Route: 048
     Dates: start: 20020201, end: 20030301
  9. FOLIAMIN [Suspect]
     Indication: FOLATE DEFICIENCY
     Dosage: DOSE: 1CAPS/WEEK
     Route: 048
     Dates: start: 20040301, end: 20040603
  10. BENET [Suspect]
     Indication: OSTEOPOROSIS
     Dosage: DOSE: 1T/DAY
     Route: 048
     Dates: start: 20040101, end: 20040610
  11. ALLEGRA [Concomitant]
     Indication: HYPERSENSITIVITY
     Route: 048
     Dates: start: 20040501, end: 20040610
  12. PREDNISOLONE [Concomitant]
     Indication: RHEUMATOID ARTHRITIS
     Route: 048
     Dates: start: 20040322, end: 20040611

REACTIONS (8)
  - DRUG ERUPTION [None]
  - EOSINOPHILIA [None]
  - HEADACHE [None]
  - NAUSEA [None]
  - PARAESTHESIA [None]
  - PRURITUS [None]
  - URTICARIA [None]
  - VOMITING [None]
